FAERS Safety Report 4522763-7 (Version None)
Quarter: 2004Q4

REPORT INFORMATION
  Report Type: 
  Country: None (occurrence: None)
  Receive Date: 20041207
  Receipt Date: 20041122
  Transmission Date: 20050328
  Serious: Yes (Death, Hospitalization)
  Sender: FDA-Public Use
  Company Number: 2004-BP-12289BP

PATIENT
  Age: 34 Year
  Sex: Male

DRUGS (3)
  1. VIRAMUNE [Suspect]
     Indication: HIV INFECTION
     Dosage: (200 MG)
     Route: 055
     Dates: start: 20040923, end: 20041017
  2. STAVUDINE   (STAVUDINE) [Suspect]
     Indication: HIV INFECTION
     Dosage: PO
     Route: 048
     Dates: start: 20040923, end: 20041017
  3. LAMIVUDINE    (LAMIVUDINE) [Suspect]
     Indication: HIV INFECTION
     Dosage: PO
     Route: 048
     Dates: start: 20040923, end: 20041017

REACTIONS (2)
  - HEPATOTOXICITY [None]
  - PULMONARY TUBERCULOSIS [None]
